FAERS Safety Report 15631202 (Version 1)
Quarter: 2018Q4

REPORT INFORMATION
  Report Type: Spontaneous
  Country: US (occurrence: US)
  Receive Date: 20181119
  Receipt Date: 20181119
  Transmission Date: 20190205
  Serious: Yes (Other)
  Sender: FDA-Public Use
  Company Number: US-BRISTOL-MYERS SQUIBB COMPANY-BMS-2018-105132

PATIENT
  Sex: Female

DRUGS (2)
  1. COUMADIN [Suspect]
     Active Substance: WARFARIN SODIUM
     Indication: THROMBOSIS
     Dosage: 1 DF, DAILY
     Route: 048
  2. DULOXETINE. [Concomitant]
     Active Substance: DULOXETINE
     Indication: PRODUCT USED FOR UNKNOWN INDICATION
     Route: 065

REACTIONS (7)
  - Atrial fibrillation [Unknown]
  - Lung neoplasm malignant [Unknown]
  - Malaise [Unknown]
  - Pain [Unknown]
  - Cholelithiasis [Unknown]
  - Hepatitis [Unknown]
  - Cholecystitis [Unknown]
